FAERS Safety Report 5616514-2 (Version None)
Quarter: 2008Q1

REPORT INFORMATION
  Report Type: 
  Country: None (occurrence: None)
  Receive Date: 20080207
  Receipt Date: 20080204
  Transmission Date: 20080703
  Serious: Yes (Other)
  Sender: FDA-Public Use
  Company Number: JP-BRISTOL-MYERS SQUIBB COMPANY-14066831

PATIENT
  Age: 66 Year
  Sex: Female

DRUGS (10)
  1. TAXOL [Suspect]
     Indication: BREAST CANCER
     Route: 041
  2. ADALAT [Concomitant]
     Route: 048
  3. NU-LOTAN [Concomitant]
     Route: 048
  4. CYANOCOBALAMIN [Concomitant]
     Route: 065
  5. OXYCONTIN [Concomitant]
     Route: 048
  6. LOXONIN [Concomitant]
     Route: 065
  7. MUCOSTA [Concomitant]
     Route: 048
  8. NAUZELIN [Concomitant]
     Route: 065
  9. MAGLAX [Concomitant]
     Route: 048
  10. OPSO [Concomitant]
     Route: 048

REACTIONS (1)
  - CEREBRAL INFARCTION [None]
